FAERS Safety Report 21921403 (Version 1)
Quarter: 2023Q1

REPORT INFORMATION
  Report Type: Report from Study
  Country: CL (occurrence: CL)
  Receive Date: 20230127
  Receipt Date: 20230127
  Transmission Date: 20230417
  Serious: Yes (Other)
  Sender: FDA-Public Use
  Company Number: CL-002147023-NVSC2023CL015203

PATIENT
  Age: 13 Year
  Sex: Male

DRUGS (1)
  1. OMNITROPE [Suspect]
     Active Substance: SOMATROPIN
     Indication: Growth hormone deficiency
     Dosage: 1 MG, QD (AMPOULE)
     Route: 003
     Dates: start: 20210923

REACTIONS (6)
  - Dermatitis atopic [Unknown]
  - Epilepsy [Unknown]
  - Hyperplasia adrenal [Unknown]
  - Skeletal dysplasia [Unknown]
  - Facial nerve disorder [Unknown]
  - Catatonia [Unknown]
